FAERS Safety Report 4847301-0 (Version None)
Quarter: 2005Q4

REPORT INFORMATION
  Report Type: 
  Country: None (occurrence: None)
  Receive Date: 20051202
  Receipt Date: 20051122
  Transmission Date: 20060501
  Serious: Yes (Hospitalization)
  Sender: FDA-Public Use
  Company Number: 2005149509

PATIENT
  Age: 67 Year
  Sex: Female

DRUGS (9)
  1. CABERGOLINE [Suspect]
     Indication: PARKINSON'S DISEASE
     Dosage: 1 MG (1 MG, QD), ORAL
     Route: 048
  2. PURSENNID (SENNA LEAF) [Concomitant]
  3. GANATON (ITOPRIDE HYDROCHLORIDE) [Concomitant]
  4. GRAPEFRUIT JUICE (CITRUS PARADISI FRUIT JUICE) [Concomitant]
  5. PARLODEL [Concomitant]
  6. SYMMETREL [Concomitant]
  7. SELEGILINE HYDROCHLORIDE (SELEGILINE HYDROCHLORIDE) [Concomitant]
  8. MADOPAR (BENSERAZIDE HYDROCHLORIDE, LEVODOPA) [Concomitant]
  9. METLIGINE (MIDODRINE HYDROCHLORIDE) [Concomitant]

REACTIONS (7)
  - ARTHROPOD BITE [None]
  - COMMUNICATION DISORDER [None]
  - DELUSION [None]
  - FOOD INTERACTION [None]
  - HALLUCINATION [None]
  - MOVEMENT DISORDER [None]
  - RASH [None]
